FAERS Safety Report 20724199 (Version 2)
Quarter: 2022Q2

REPORT INFORMATION
  Report Type: Spontaneous
  Country: US (occurrence: US)
  Receive Date: 20220419
  Receipt Date: 20220626
  Transmission Date: 20220721
  Serious: Yes (Hospitalization)
  Sender: FDA-Public Use
  Company Number: US-GLENMARK PHARMACEUTICALS-2022GMK070952

PATIENT

DRUGS (3)
  1. TELMISARTAN [Suspect]
     Active Substance: TELMISARTAN
     Indication: Hypertension
     Dosage: 40 MILLIGRAM, OD (IN THE MORNING)
     Route: 048
     Dates: start: 202110
  2. TELMISARTAN [Suspect]
     Active Substance: TELMISARTAN
     Dosage: 40 MILLIGRAM, OD (RESTARTED)
     Route: 048
     Dates: end: 20220222
  3. TELMISARTAN [Suspect]
     Active Substance: TELMISARTAN
     Dosage: UNK (BLISTER PACK)
     Route: 065

REACTIONS (9)
  - Heart rate increased [Unknown]
  - Irritability [Unknown]
  - Agitation [Unknown]
  - Anger [Unknown]
  - Feeling jittery [Unknown]
  - Sinus disorder [Unknown]
  - Anxiety [Unknown]
  - Insomnia [Unknown]
  - Drug ineffective [Unknown]

NARRATIVE: CASE EVENT DATE: 20220128
